FAERS Safety Report 23659428 (Version 1)
Quarter: 2024Q1

REPORT INFORMATION
  Report Type: Spontaneous
  Country: US (occurrence: US)
  Receive Date: 20240321
  Receipt Date: 20240321
  Transmission Date: 20240410
  Serious: No
  Sender: FDA-Public Use
  Company Number: US-BRAEBURN-US-BRA-24-000131

PATIENT
  Sex: Male

DRUGS (1)
  1. BRIXADI [Suspect]
     Active Substance: BUPRENORPHINE
     Indication: Product used for unknown indication
     Dosage: 128 MILLIGRAM, MONTHLY
     Route: 058
     Dates: start: 20231216, end: 20240213

REACTIONS (6)
  - Abdominal pain upper [Unknown]
  - Muscle spasms [Unknown]
  - Fatigue [Unknown]
  - Withdrawal syndrome [Unknown]
  - Insomnia [Unknown]
  - Drug dependence [Unknown]
